FAERS Safety Report 6593633-8 (Version None)
Quarter: 2010Q1

REPORT INFORMATION
  Report Type: 
  Country: None (occurrence: None)
  Receive Date: 20100222
  Receipt Date: 20090922
  Transmission Date: 20100710
  Serious: No
  Sender: FDA-Public Use
  Company Number: US-BRISTOL-MYERS SQUIBB COMPANY-14788640

PATIENT
  Age: 59 Year
  Sex: Female
  Weight: 52 kg

DRUGS (12)
  1. ORENCIA [Suspect]
     Indication: RHEUMATOID ARTHRITIS
     Route: 042
     Dates: start: 20090915
  2. LIPITOR [Concomitant]
  3. LEXAPRO [Concomitant]
  4. NORCO [Concomitant]
  5. PREDNISONE [Concomitant]
  6. FOLGARD [Concomitant]
  7. SOMA [Concomitant]
  8. XANAX [Concomitant]
  9. METHOTREXATE [Concomitant]
  10. ALTACE [Concomitant]
  11. MULTI-VITAMIN [Concomitant]
  12. CENTRUM SILVER [Concomitant]

REACTIONS (3)
  - LIP ULCERATION [None]
  - MUSCULOSKELETAL PAIN [None]
  - ORAL DISORDER [None]
